FAERS Safety Report 14601668 (Version 3)
Quarter: 2018Q4

REPORT INFORMATION
  Report Type: Spontaneous
  Country: JP (occurrence: JP)
  Receive Date: 20180306
  Receipt Date: 20181216
  Transmission Date: 20190204
  Serious: Yes (Hospitalization, Other)
  Sender: FDA-Public Use
  Company Number: JP-ROCHE-2081163

PATIENT
  Age: 82 Year
  Sex: Male

DRUGS (2)
  1. LUCENTIS [Suspect]
     Active Substance: RANIBIZUMAB
     Indication: AGE-RELATED MACULAR DEGENERATION
     Dosage: PRN (IN THE BILATERAL EYES)
     Route: 031
  2. EYLEA [Suspect]
     Active Substance: AFLIBERCEPT
     Indication: PRODUCT USED FOR UNKNOWN INDICATION
     Route: 031

REACTIONS (3)
  - Visual acuity reduced [Recovering/Resolving]
  - Physical deconditioning [Unknown]
  - Cardiac failure [Recovering/Resolving]
